FAERS Safety Report 10189989 (Version 1)
Quarter: 2014Q2

REPORT INFORMATION
  Report Type: Spontaneous
  Country: CH (occurrence: CH)
  Receive Date: 20140522
  Receipt Date: 20140522
  Transmission Date: 20141212
  Serious: Yes (Hospitalization)
  Sender: FDA-Public Use
  Company Number: PHHY2014CH060367

PATIENT
  Age: 71 Year
  Sex: Female
  Weight: 73.3 kg

DRUGS (14)
  1. METFIN [Suspect]
     Dosage: 1000 MG, TID
     Route: 048
     Dates: end: 20140403
  2. ONGLYZA [Suspect]
     Dosage: 5 MG, QD
     Route: 048
  3. NOVOMIX 30 [Suspect]
     Dosage: 40 IU, BID
     Route: 058
  4. ATENOLOL [Concomitant]
     Dosage: 100 MG, QD
     Route: 048
  5. CADUET [Concomitant]
     Dosage: 1 DF, QD
     Route: 048
     Dates: end: 20140403
  6. DANCOR [Concomitant]
     Dosage: 10 MG, BID
     Route: 048
  7. MODURETIC [Concomitant]
     Dosage: 1 DF, QD
     Route: 048
     Dates: end: 20140403
  8. QUETIAPINE [Concomitant]
     Dosage: 12.5 MG, QD
     Route: 048
  9. DETRUSITOL [Concomitant]
     Dosage: 4 MG, QD
     Route: 048
  10. ASPIRIN CARDIO [Concomitant]
     Dosage: 100 MG, QD
     Route: 048
  11. PANTOPRAZOL [Concomitant]
     Dosage: 20 MG, QD
     Route: 048
  12. PAROXETIN [Concomitant]
     Dosage: 20 MG, QD
     Route: 048
  13. ATARAX [Concomitant]
     Dosage: 12.5 MG, TID
     Route: 048
  14. LYRICA [Concomitant]
     Dosage: 75 MG, BID
     Route: 048

REACTIONS (3)
  - Hypoglycaemia [Recovered/Resolved]
  - Malaise [Recovered/Resolved]
  - Fall [Recovered/Resolved]
